FAERS Safety Report 4992062-8 (Version None)
Quarter: 2006Q2

REPORT INFORMATION
  Report Type: 
  Country: None (occurrence: None)
  Receive Date: 20060502
  Receipt Date: 20060419
  Transmission Date: 20061013
  Serious: Yes (Other)
  Sender: FDA-Public Use
  Company Number: 2006-04-0531

PATIENT
  Age: 23 Year
  Sex: Female

DRUGS (2)
  1. REBETOL [Suspect]
     Indication: HEPATITIS C
     Dosage: 800 MG ORAL
     Route: 048
     Dates: start: 20051101, end: 20060417
  2. INTRON A [Suspect]
     Indication: HEPATITIS C
     Dosage: 3 MIU TIW SUBCUTANEOUS
     Route: 058
     Dates: start: 20051101, end: 20060417

REACTIONS (3)
  - HYPERTHYROIDISM [None]
  - HYPOTHYROIDISM [None]
  - THYROIDITIS [None]
